FAERS Safety Report 13840322 (Version 2)
Quarter: 2018Q1

REPORT INFORMATION
  Report Type: Spontaneous
  Country: US (occurrence: US)
  Receive Date: 20170807
  Receipt Date: 20180306
  Transmission Date: 20180508
  Serious: No
  Sender: FDA-Public Use
  Company Number: US-AEGERION PHARMACEUTICAL, INC-AEGR003211

PATIENT
  Age: 21 Year
  Sex: Female

DRUGS (1)
  1. MYALEPT [Suspect]
     Active Substance: METRELEPTIN
     Indication: CONGENITAL GENERALISED LIPODYSTROPHY
     Dosage: 3.75 MG, QD
     Route: 058
     Dates: start: 201705

REACTIONS (1)
  - Breast pain [Recovering/Resolving]

NARRATIVE: CASE EVENT DATE: 20170607
